FAERS Safety Report 10028573 (Version 2)
Quarter: 2014Q1

REPORT INFORMATION
  Report Type: Spontaneous
  Country: US (occurrence: US)
  Receive Date: 20140321
  Receipt Date: 20140321
  Transmission Date: 20141002
  Serious: Yes (Hospitalization)
  Sender: FDA-Public Use
  Company Number: US-GLAXOSMITHKLINE-A0813502A

PATIENT
  Age: 53 Year
  Sex: Male
  Weight: 100 kg

DRUGS (8)
  1. AVANDIA [Suspect]
     Indication: DIABETES MELLITUS
     Dosage: 4MG PER DAY
     Route: 048
     Dates: end: 20080912
  2. AVANDAMET [Suspect]
     Indication: DIABETES MELLITUS
     Route: 048
  3. ADVAIR [Concomitant]
  4. LIPITOR [Concomitant]
  5. CLONIDINE [Concomitant]
  6. ENALAPRIL [Concomitant]
  7. GLIPIZIDE [Concomitant]
  8. METFORMIN [Concomitant]

REACTIONS (7)
  - Cerebrovascular accident [Unknown]
  - Cardiac failure congestive [Unknown]
  - Renal injury [Unknown]
  - Cardiac disorder [Unknown]
  - Renal failure [Unknown]
  - Lacunar infarction [Unknown]
  - Transient ischaemic attack [Unknown]
